FAERS Safety Report 17675974 (Version 1)
Quarter: 2020Q2

REPORT INFORMATION
  Report Type: Spontaneous
  Country: RU (occurrence: RU)
  Receive Date: 20200416
  Receipt Date: 20200416
  Transmission Date: 20200714
  Serious: Yes (Other)
  Sender: FDA-Public Use
  Company Number: RU-SA-2020SA097568

PATIENT
  Age: 58 Year
  Sex: Female
  Weight: 105 kg

DRUGS (6)
  1. BISOPROLOL [Concomitant]
     Active Substance: BISOPROLOL
     Dosage: 2.5 MG
     Route: 048
     Dates: start: 20180101
  2. APIDRA [Suspect]
     Active Substance: INSULIN GLULISINE
     Indication: DIABETES MELLITUS
     Dosage: 12 IU/ML
     Route: 058
  3. TOUJEO [Suspect]
     Active Substance: INSULIN GLARGINE
     Indication: DIABETES MELLITUS
     Dosage: 38 IU/ML, TOTAL
     Route: 058
     Dates: start: 20190628, end: 20190628
  4. INSULIN GLARGINE [Suspect]
     Active Substance: INSULIN GLARGINE
     Indication: DIABETES MELLITUS
     Dosage: 38 IU/ML, TOTAL
     Route: 058
     Dates: start: 20191205, end: 20191205
  5. INDAPAMIDE. [Concomitant]
     Active Substance: INDAPAMIDE
     Dosage: 2.5 MG
     Route: 048
     Dates: start: 20180101
  6. TELPRES [Concomitant]
     Dosage: 80 MG
     Route: 048
     Dates: start: 20180101

REACTIONS (1)
  - Diarrhoea [Recovering/Resolving]
